FAERS Safety Report 9845439 (Version 2)
Quarter: 2014Q1

REPORT INFORMATION
  Report Type: Spontaneous
  Country: FR (occurrence: None)
  Receive Date: 20140122
  Receipt Date: 20140131
  Transmission Date: 20141002
  Serious: Yes (Hospitalization, Disabling, Other)
  Sender: FDA-Public Use
  Company Number: SYM-2014-14817

PATIENT
  Age: 52 Year
  Sex: Female

DRUGS (23)
  1. FLAGYL [Suspect]
     Indication: CLOSTRIDIUM DIFFICILE COLITIS
     Dosage: 1 DOSAGE FORMS, 3 IN 1 D, ORAL
     Route: 048
     Dates: start: 20110114, end: 201102
  2. CALCIDIA (CALCIUM CARBONATE) [Concomitant]
  3. YOHIMBINE (YOHIMBINE) [Concomitant]
  4. DAFLON (DIOSMIN) [Concomitant]
  5. DEFANYL (MAGNESIUM PIDOLATE) [Concomitant]
  6. DEPAKINE CHRONO (ERGENYL CHRONO) [Concomitant]
  7. INEXIUM (ESOMEPRAZOLE MAGNESIUM) (ESOMEPRAZOLE MAGNESIUM) [Concomitant]
  8. RISPERDAL [Concomitant]
  9. LEXOMIL (BROMAZEPAM) [Concomitant]
  10. NOCTRAN (NOCTRAN) (ACEPROMAZINE MAELEATE, CLORAZEPATE DIPOTASSIUM, ACEPROMETAZINE MALEATE) [Concomitant]
  11. HEPTAMINOL (HEPTAMINOL) [Concomitant]
  12. FUNGIZONE (AMPHOTERICIN B) [Concomitant]
  13. DIFFU K (POTASSIUM CHLORIDE) (POTASSIUM CHLORIDE) [Concomitant]
  14. OLANZAPINE (OLANZAPINE) [Concomitant]
  15. STILNOX (ZOLPIDEM TARTRATE) [Concomitant]
  16. SEROPLEX (ESCITALOPRAM OXALATE) [Concomitant]
  17. KALEORID (POTASSIUM CHLORIDE) (POTASSIUM CHLORIDE) [Concomitant]
  18. PRAXINOR (AKRINOR) (THEODRENALINE HYDROCHLORIDE, CAFEDRINE HYDROCHLORIDE) [Concomitant]
  19. UVEDOSE (COLECALCIFEROL) [Concomitant]
  20. ELUDRIL (ELUDRIL /00914501/) [Concomitant]
  21. SODIUM BICARBONATE (SODIUM BICARBONATE) [Concomitant]
  22. PHOSPHONEUROS (PHOSPHONEUROS) (MAGNESIUM GLYCEROPHOSPHATE, SODIUM PHOSPHATE DIBASIC, PHOSPHORIC ACID, CALCIUM PHOSPHATE DIBASIC) [Concomitant]
  23. MAG 2 [Concomitant]

REACTIONS (9)
  - Neuropathy peripheral [None]
  - Paresis [None]
  - Radiculopathy [None]
  - Pyelonephritis [None]
  - Hepatic steatosis [None]
  - Intervertebral disc degeneration [None]
  - Neurotoxicity [None]
  - Wheelchair user [None]
  - General physical health deterioration [None]
